FAERS Safety Report 4670821-9 (Version None)
Quarter: 2005Q2

REPORT INFORMATION
  Report Type: 
  Country: None (occurrence: None)
  Receive Date: 20050523
  Receipt Date: 20050516
  Transmission Date: 20051028
  Serious: Yes (Disabling)
  Sender: FDA-Public Use
  Company Number: US-MERCK-0505USA01869

PATIENT
  Age: 77 Year
  Sex: Male

DRUGS (2)
  1. ZOCOR [Suspect]
     Indication: BLOOD CHOLESTEROL INCREASED
     Route: 048
  2. VERAPAMIL [Concomitant]
     Route: 065

REACTIONS (4)
  - MEDICATION ERROR [None]
  - MYALGIA [None]
  - PAIN IN EXTREMITY [None]
  - SHOULDER PAIN [None]
